FAERS Safety Report 25916762 (Version 1)
Quarter: 2025Q4

REPORT INFORMATION
  Report Type: Spontaneous
  Country: EU (occurrence: EU)
  Receive Date: 20251014
  Receipt Date: 20251014
  Transmission Date: 20260118
  Serious: Yes (Other)
  Sender: TEVA
  Company Number: None

PATIENT
  Sex: Female

DRUGS (2)
  1. QUETIAPINE [Suspect]
     Active Substance: QUETIAPINE
     Indication: Product used for unknown indication
     Dosage: ADVICE TO DISCONTINUE QUETIAPINE.
     Route: 048
  2. VALPROATE SODIUM [Suspect]
     Active Substance: VALPROATE SODIUM
     Indication: Product used for unknown indication
     Dosage: VALPROATE DOSE REDUCTION
     Route: 048

REACTIONS (2)
  - Hyperammonaemia [Unknown]
  - Catatonia [Unknown]

NARRATIVE: CASE EVENT DATE: 20250925
